FAERS Safety Report 16594654 (Version 2)
Quarter: 2019Q3

REPORT INFORMATION
  Report Type: Spontaneous
  Country: US (occurrence: US)
  Receive Date: 20190718
  Receipt Date: 20190919
  Transmission Date: 20191004
  Serious: Yes (Hospitalization, Other)
  Sender: FDA-Public Use
  Company Number: US-PFIZER INC-2015214677

PATIENT
  Age: 70 Year
  Sex: Female
  Weight: 69 kg

DRUGS (4)
  1. LYRICA [Suspect]
     Active Substance: PREGABALIN
     Indication: FIBROMYALGIA
     Dosage: 225 MG, 2X/DAY (1 CAPSULE)
     Route: 048
     Dates: start: 20150616
  2. MONTELUKAST [Concomitant]
     Active Substance: MONTELUKAST SODIUM
     Indication: HYPERSENSITIVITY
     Dosage: 10 MG, 1X/DAY
     Dates: start: 2015
  3. TRAMADOL. [Concomitant]
     Active Substance: TRAMADOL
     Indication: ARTHRITIS
     Dosage: UNK, 2X/DAY (2 TWICE DAILY)
     Dates: start: 2015
  4. LISINOPRIL. [Concomitant]
     Active Substance: LISINOPRIL
     Indication: BLOOD PRESSURE ABNORMAL
     Dosage: 20 MG, 1X/DAY
     Dates: start: 1994

REACTIONS (4)
  - Urinary tract infection [Recovered/Resolved]
  - Pyrexia [Unknown]
  - Loss of consciousness [Recovered/Resolved]
  - Confusional state [Recovered/Resolved]
